FAERS Safety Report 17452532 (Version 2)
Quarter: 2021Q1

REPORT INFORMATION
  Report Type: Report from Study
  Country: JP (occurrence: JP)
  Receive Date: 20200224
  Receipt Date: 20210127
  Transmission Date: 20210419
  Serious: Yes (Death)
  Sender: FDA-Public Use
  Company Number: JP-PFIZER INC-2020078516

PATIENT
  Age: 70 Year
  Sex: Male
  Weight: 61.8 kg

DRUGS (9)
  1. BESPONSA [Suspect]
     Active Substance: INOTUZUMAB OZOGAMICIN
     Dosage: 0.5 MG/M2, 1 CYCLIC
     Route: 041
     Dates: start: 20200130, end: 20200130
  2. BESPONSA [Suspect]
     Active Substance: INOTUZUMAB OZOGAMICIN
     Dosage: 0.5 MG/M2, 1 CYCLIC
     Route: 041
     Dates: start: 20200508, end: 20200508
  3. BESPONSA [Suspect]
     Active Substance: INOTUZUMAB OZOGAMICIN
     Indication: ACUTE LYMPHOCYTIC LEUKAEMIA RECURRENT
     Dosage: 0.8 MG/M2, 1 CYCLIC
     Route: 041
     Dates: start: 20200123, end: 20200123
  4. BESPONSA [Suspect]
     Active Substance: INOTUZUMAB OZOGAMICIN
     Dosage: 0.5 MG/M2, 1 CYCLIC
     Route: 041
     Dates: start: 20200206, end: 20200206
  5. BESPONSA [Suspect]
     Active Substance: INOTUZUMAB OZOGAMICIN
     Dosage: 0.5 MG/M2, 1 CYCLIC
     Route: 041
     Dates: start: 20200515, end: 20200515
  6. BESPONSA [Suspect]
     Active Substance: INOTUZUMAB OZOGAMICIN
     Dosage: 0.8 MG/M2, 1 CYCLIC
     Route: 041
     Dates: start: 20200310, end: 20200310
  7. BESPONSA [Suspect]
     Active Substance: INOTUZUMAB OZOGAMICIN
     Dosage: 0.5 MG/M2, 1 CYCLIC
     Route: 041
     Dates: start: 20200317, end: 20200317
  8. BESPONSA [Suspect]
     Active Substance: INOTUZUMAB OZOGAMICIN
     Dosage: 0.5 MG/M2, 1 CYCLIC
     Route: 041
     Dates: start: 20200501, end: 20200501
  9. BESPONSA [Suspect]
     Active Substance: INOTUZUMAB OZOGAMICIN
     Dosage: 0.5 MG/M2, 1 CYCLIC
     Route: 041
     Dates: start: 20200324, end: 20200324

REACTIONS (3)
  - Anaemia [Recovering/Resolving]
  - Platelet count decreased [Recovering/Resolving]
  - Neutrophil count decreased [Recovering/Resolving]

NARRATIVE: CASE EVENT DATE: 20200206
